FAERS Safety Report 9002381 (Version 2)
Quarter: 2013Q1

REPORT INFORMATION
  Report Type: Spontaneous
  Country: CA (occurrence: CA)
  Receive Date: 20130107
  Receipt Date: 20130111
  Transmission Date: 20140127
  Serious: Yes (Hospitalization)
  Sender: FDA-Public Use
  Company Number: PHHY2012CA122596

PATIENT
  Age: 78 Year
  Sex: Male

DRUGS (1)
  1. ACLASTA [Suspect]
     Indication: OSTEOARTHRITIS
     Dosage: 5 MG, UNK
     Route: 042
     Dates: start: 20111214

REACTIONS (3)
  - General physical health deterioration [Unknown]
  - Pain [Unknown]
  - Abasia [Unknown]
